FAERS Safety Report 9111522 (Version 1)
Quarter: 2013Q1

REPORT INFORMATION
  Report Type: Spontaneous
  Country: US (occurrence: US)
  Receive Date: 20130219
  Receipt Date: 20130219
  Transmission Date: 20140127
  Serious: No
  Sender: FDA-Public Use
  Company Number: US-BRISTOL-MYERS SQUIBB COMPANY-16897100

PATIENT
  Age: 70 Year
  Sex: Female
  Weight: 73.01 kg

DRUGS (3)
  1. ORENCIA [Suspect]
     Indication: RHEUMATOID ARTHRITIS
     Dosage: ORENCIA SQ:125MG INJ?LOT# 1K67357?EXP DATE: SEP 2013?LAST INF ON 2012
     Route: 042
     Dates: end: 201208
  2. CYMBALTA [Concomitant]
  3. METHOTREXATE [Concomitant]

REACTIONS (3)
  - Poor venous access [Unknown]
  - Contusion [Unknown]
  - Haemorrhage [Unknown]
